FAERS Safety Report 5321468-2 (Version None)
Quarter: 2007Q2

REPORT INFORMATION
  Report Type: 
  Country: None (occurrence: None)
  Receive Date: 20070510
  Receipt Date: 20070504
  Transmission Date: 20071010
  Serious: Yes (Other)
  Sender: FDA-Public Use
  Company Number: B0469810A

PATIENT
  Sex: Male

DRUGS (3)
  1. AVODART [Suspect]
     Indication: BENIGN PROSTATIC HYPERPLASIA
  2. ANTIHYPERTENSIVE [Concomitant]
     Indication: CORONARY ARTERY DISEASE
  3. CARDIAC DRUG [Concomitant]
     Indication: CORONARY ARTERY DISEASE

REACTIONS (1)
  - NEUTROPENIA [None]
